FAERS Safety Report 15701062 (Version 1)
Quarter: 2018Q4

REPORT INFORMATION
  Report Type: Spontaneous
  Country: SA (occurrence: SA)
  Receive Date: 20181207
  Receipt Date: 20181207
  Transmission Date: 20190205
  Serious: Yes (Hospitalization, Other)
  Sender: FDA-Public Use
  Company Number: PHHY2018SA176269

PATIENT
  Age: 43 Year
  Sex: Male

DRUGS (4)
  1. ENTRESTO [Suspect]
     Active Substance: SACUBITRIL\VALSARTAN
     Dosage: 100 MG, BID (INCREASED DOSE)
     Route: 048
     Dates: start: 201709
  2. ENTRESTO [Suspect]
     Active Substance: SACUBITRIL\VALSARTAN
     Indication: CARDIAC FAILURE
     Dosage: 50 MG, BID
     Route: 048
     Dates: start: 201707
  3. ENTRESTO [Suspect]
     Active Substance: SACUBITRIL\VALSARTAN
     Dosage: 200 MG, BID
     Route: 048
     Dates: start: 201712
  4. LASIX [Concomitant]
     Active Substance: FUROSEMIDE
     Indication: PRODUCT USED FOR UNKNOWN INDICATION
     Dosage: 80 MG, BID (INCREASED DOSE)
     Route: 048
     Dates: start: 201712

REACTIONS (12)
  - Cardiac failure [Recovered/Resolved]
  - Left ventricular dilatation [Recovered/Resolved]
  - Skin infection [Recovered/Resolved]
  - Diabetic foot infection [Recovered/Resolved]
  - Acute coronary syndrome [Recovered/Resolved]
  - Oedema peripheral [Unknown]
  - Left ventricular dysfunction [Recovered/Resolved]
  - Diastolic dysfunction [Recovered/Resolved]
  - Myocardial ischaemia [Recovered/Resolved]
  - Ischaemic cardiomyopathy [Recovered/Resolved]
  - Mitral valve incompetence [Recovered/Resolved]
  - Chest pain [Recovering/Resolving]

NARRATIVE: CASE EVENT DATE: 201707
